FAERS Safety Report 11148996 (Version 3)
Quarter: 2019Q2

REPORT INFORMATION
  Report Type: Report from Study
  Country: US (occurrence: US)
  Receive Date: 20150529
  Receipt Date: 20190611
  Transmission Date: 20190711
  Serious: Yes (Other)
  Sender: FDA-Public Use
  Company Number: US-SA-2014SA155334

PATIENT
  Age: 56 Year
  Sex: Female

DRUGS (2)
  1. TERIFLUNOMIDE. [Suspect]
     Active Substance: TERIFLUNOMIDE
     Indication: MULTIPLE SCLEROSIS
     Dosage: 7 MG,QD
     Route: 048
     Dates: start: 20141029, end: 20150302
  2. TERIFLUNOMIDE. [Suspect]
     Active Substance: TERIFLUNOMIDE
     Dosage: 14 MG,QD
     Route: 048
     Dates: start: 20150303

REACTIONS (9)
  - Vomiting [Unknown]
  - Insomnia [Not Recovered/Not Resolved]
  - Blood glucose increased [Unknown]
  - Pain [Not Recovered/Not Resolved]
  - Spinal operation [Recovered/Resolved]
  - Intentional product misuse [Unknown]
  - Malaise [Unknown]
  - Pain in extremity [Unknown]
  - Cardiovascular disorder [Unknown]

NARRATIVE: CASE EVENT DATE: 2015
